FAERS Safety Report 5908197-9 (Version None)
Quarter: 2008Q4

REPORT INFORMATION
  Report Type: 
  Country: None (occurrence: None)
  Receive Date: 20081003
  Receipt Date: 20080930
  Transmission Date: 20090506
  Serious: Yes (Hospitalization)
  Sender: FDA-Public Use
  Company Number: US-GENENTECH-268343

PATIENT
  Sex: Male
  Weight: 68.027 kg

DRUGS (6)
  1. AVASTIN [Suspect]
     Indication: OESOPHAGEAL CARCINOMA
     Dosage: 15 MG, UNK
     Dates: start: 20080820
  2. ERLOTINIB [Suspect]
     Indication: OESOPHAGEAL CARCINOMA
     Dosage: 100 MG, QD
     Dates: start: 20080820
  3. CARBOPLATIN [Concomitant]
     Indication: OESOPHAGEAL CARCINOMA
     Dosage: 5 AUC, UNK
     Dates: start: 20080820
  4. TAXOL [Concomitant]
     Indication: OESOPHAGEAL CARCINOMA
     Dosage: 200 MG/KG, UNK
     Dates: start: 20080820
  5. RADIATION THERAPY [Concomitant]
     Indication: OESOPHAGEAL CARCINOMA
     Dosage: 1.8 GY, 5/WEEK
     Dates: start: 20080820
  6. FLUOROURACIL [Concomitant]
     Indication: OESOPHAGEAL CARCINOMA
     Dosage: 225 MG/M2, UNK
     Dates: start: 20080820

REACTIONS (2)
  - FEBRILE NEUTROPENIA [None]
  - OESOPHAGITIS [None]
